FAERS Safety Report 15384829 (Version 4)
Quarter: 2019Q1

REPORT INFORMATION
  Report Type: Report from Study
  Country: DE (occurrence: DE)
  Receive Date: 20180914
  Receipt Date: 20190307
  Transmission Date: 20190417
  Serious: Yes (Death, Other)
  Sender: FDA-Public Use
  Company Number: DE-ROCHE-2184703

PATIENT
  Age: 40 Year
  Sex: Female
  Weight: 108 kg

DRUGS (36)
  1. VEMURAFENIB. [Suspect]
     Active Substance: VEMURAFENIB
     Route: 048
     Dates: start: 20180220, end: 20180222
  2. DEXAMETHASONE. [Suspect]
     Active Substance: DEXAMETHASONE
     Route: 048
     Dates: start: 20180208, end: 20180214
  3. LEVETIRACETAM. [Concomitant]
     Active Substance: LEVETIRACETAM
     Route: 048
     Dates: start: 20180324, end: 20180414
  4. COBIMETINIB. [Suspect]
     Active Substance: COBIMETINIB
     Indication: MALIGNANT MELANOMA
     Route: 048
     Dates: start: 20180202, end: 20180216
  5. VEMURAFENIB. [Suspect]
     Active Substance: VEMURAFENIB
     Route: 048
     Dates: start: 20180216, end: 20180216
  6. VEMURAFENIB. [Suspect]
     Active Substance: VEMURAFENIB
     Route: 048
     Dates: start: 20180308, end: 20180316
  7. DEXAMETHASONE. [Suspect]
     Active Substance: DEXAMETHASONE
     Route: 048
     Dates: start: 20180315, end: 20180315
  8. DEXAMETHASONE. [Suspect]
     Active Substance: DEXAMETHASONE
     Route: 048
     Dates: start: 20180317, end: 20180324
  9. DEXAMETHASONE. [Suspect]
     Active Substance: DEXAMETHASONE
     Route: 058
     Dates: start: 20180417, end: 20180421
  10. PREDNISOLON [Suspect]
     Active Substance: PREDNISOLONE
     Route: 048
     Dates: start: 20180205, end: 20180211
  11. PANTOPRAZOL [Concomitant]
     Active Substance: PANTOPRAZOLE SODIUM
     Indication: GASTROINTESTINAL DISORDER PROPHYLAXIS
     Route: 048
     Dates: start: 20170901, end: 20180415
  12. LEVETIRACETAM. [Concomitant]
     Active Substance: LEVETIRACETAM
     Route: 048
     Dates: start: 20180415, end: 20180415
  13. VEMURAFENIB. [Suspect]
     Active Substance: VEMURAFENIB
     Route: 048
     Dates: start: 20180220, end: 20180222
  14. DEXAMETHASONE. [Suspect]
     Active Substance: DEXAMETHASONE
     Route: 048
     Dates: start: 20180414, end: 20180416
  15. PREDNISOLON [Suspect]
     Active Substance: PREDNISOLONE
     Route: 048
     Dates: start: 20180219, end: 20180225
  16. SYMBICORT [Concomitant]
     Active Substance: BUDESONIDE\FORMOTEROL FUMARATE DIHYDRATE
     Indication: ASTHMA
     Route: 048
     Dates: start: 20120101, end: 20180404
  17. LEVETIRACETAM. [Concomitant]
     Active Substance: LEVETIRACETAM
     Route: 058
     Dates: start: 20180421, end: 20180421
  18. PICOSALAX [Concomitant]
     Active Substance: ANHYDROUS CITRIC ACID\MAGNESIUM OXIDE\SODIUM PICOSULFATE
     Route: 048
     Dates: start: 20180409, end: 20180414
  19. VEMURAFENIB. [Suspect]
     Active Substance: VEMURAFENIB
     Indication: MALIGNANT MELANOMA
     Route: 048
     Dates: start: 20180202, end: 20180215
  20. DEXAMETHASONE. [Suspect]
     Active Substance: DEXAMETHASONE
     Route: 048
     Dates: start: 20180202, end: 20180207
  21. COBIMETINIB. [Suspect]
     Active Substance: COBIMETINIB
     Route: 048
     Dates: start: 20180220, end: 20180222
  22. DEXAMETHASONE. [Suspect]
     Active Substance: DEXAMETHASONE
     Route: 048
     Dates: start: 20180325, end: 20180328
  23. DEXAMETHASONE. [Suspect]
     Active Substance: DEXAMETHASONE
     Route: 048
     Dates: start: 20180321, end: 20180321
  24. DEXAMETHASONE. [Suspect]
     Active Substance: DEXAMETHASONE
     Route: 048
     Dates: start: 20180409, end: 20180411
  25. CODEIN [Concomitant]
     Active Substance: CODEINE
     Route: 048
     Dates: start: 20180404, end: 20180404
  26. COBIMETINIB. [Suspect]
     Active Substance: COBIMETINIB
     Route: 048
     Dates: start: 20180121
  27. PREDNISOLON [Suspect]
     Active Substance: PREDNISOLONE
     Indication: PNEUMONITIS
     Route: 048
     Dates: start: 20180129, end: 20180204
  28. PREDNISOLON [Suspect]
     Active Substance: PREDNISOLONE
     Route: 048
     Dates: start: 20180212, end: 20180218
  29. PICOSALAX [Concomitant]
     Active Substance: ANHYDROUS CITRIC ACID\MAGNESIUM OXIDE\SODIUM PICOSULFATE
     Route: 048
     Dates: start: 20180401, end: 20180402
  30. VEMURAFENIB. [Suspect]
     Active Substance: VEMURAFENIB
     Route: 048
     Dates: start: 20180216, end: 20180216
  31. DEXAMETHASONE. [Suspect]
     Active Substance: DEXAMETHASONE
     Indication: METASTASES TO CENTRAL NERVOUS SYSTEM
     Route: 048
     Dates: start: 20180201, end: 20180201
  32. LEVETIRACETAM. [Concomitant]
     Active Substance: LEVETIRACETAM
     Route: 058
     Dates: start: 20180415, end: 20180420
  33. PICOSALAX [Concomitant]
     Active Substance: ANHYDROUS CITRIC ACID\MAGNESIUM OXIDE\SODIUM PICOSULFATE
     Indication: CONSTIPATION
     Route: 048
     Dates: start: 20180408, end: 20180408
  34. COBIMETINIB. [Suspect]
     Active Substance: COBIMETINIB
     Route: 048
     Dates: start: 20180308, end: 20180316
  35. LEVETIRACETAM. [Concomitant]
     Active Substance: LEVETIRACETAM
     Indication: EPILEPSY
     Route: 048
     Dates: start: 20171101, end: 20180323
  36. PICOSALAX [Concomitant]
     Active Substance: ANHYDROUS CITRIC ACID\MAGNESIUM OXIDE\SODIUM PICOSULFATE
     Route: 048

REACTIONS (8)
  - Nervous system disorder [Not Recovered/Not Resolved]
  - Death [Fatal]
  - Dysarthria [Not Recovered/Not Resolved]
  - Coma [Not Recovered/Not Resolved]
  - Disorientation [Not Recovered/Not Resolved]
  - Organic brain syndrome [Not Recovered/Not Resolved]
  - Balance disorder [Recovered/Resolved]
  - Brain stem syndrome [Not Recovered/Not Resolved]

NARRATIVE: CASE EVENT DATE: 201803
